FAERS Safety Report 12904841 (Version 6)
Quarter: 2017Q2

REPORT INFORMATION
  Report Type: Spontaneous
  Country: US (occurrence: US)
  Receive Date: 20161102
  Receipt Date: 20170501
  Transmission Date: 20170830
  Serious: No
  Sender: FDA-Public Use
  Company Number: US-ACTELION-A-NJ2016-143755

PATIENT
  Age: 57 Year
  Sex: Female
  Weight: 71.2 kg

DRUGS (8)
  1. VELETRI [Suspect]
     Active Substance: EPOPROSTENOL
     Dosage: 28 NG/KG, PER MIN
     Route: 042
  2. ADCIRCA [Concomitant]
     Active Substance: TADALAFIL
  3. VELETRI [Suspect]
     Active Substance: EPOPROSTENOL
     Dosage: 11 NG/KG, PER MIN
     Route: 042
  4. VELETRI [Suspect]
     Active Substance: EPOPROSTENOL
     Indication: PULMONARY ARTERIAL HYPERTENSION
     Dosage: 6 NG/KG, PER MIN
     Route: 042
     Dates: start: 20160922
  5. OPSUMIT [Suspect]
     Active Substance: MACITENTAN
     Indication: PULMONARY ARTERIAL HYPERTENSION
     Dosage: UNK
     Route: 048
     Dates: start: 20160923
  6. REVATIO [Concomitant]
     Active Substance: SILDENAFIL CITRATE
  7. DILTIAZEM. [Concomitant]
     Active Substance: DILTIAZEM
  8. XARELTO [Concomitant]
     Active Substance: RIVAROXABAN

REACTIONS (16)
  - Fatigue [Unknown]
  - Constipation [Unknown]
  - Weight decreased [Unknown]
  - Fluid retention [Unknown]
  - Concomitant disease aggravated [Unknown]
  - Pain in jaw [Unknown]
  - Catheter site erythema [Unknown]
  - Catheter site inflammation [Unknown]
  - Flushing [Unknown]
  - Swelling [Unknown]
  - Nausea [Unknown]
  - Diarrhoea [Unknown]
  - Chills [Unknown]
  - Decreased appetite [Unknown]
  - Eating disorder [Unknown]
  - Catheter site pain [Unknown]
